FAERS Safety Report 24397440 (Version 6)
Quarter: 2025Q1

REPORT INFORMATION
  Report Type: Report from Study
  Country: US (occurrence: US)
  Receive Date: 20241004
  Receipt Date: 20250103
  Transmission Date: 20250409
  Serious: Yes (Hospitalization, Other)
  Sender: SUNOVION
  Company Number: US-SUMITOMO PHARMA SWITZERLAND GMBH-2024SPA003160

PATIENT

DRUGS (1)
  1. ORGOVYX [Suspect]
     Active Substance: RELUGOLIX
     Indication: Prostate cancer
     Dosage: 120 MG, QD
     Route: 048
     Dates: start: 20240911

REACTIONS (13)
  - Thrombosis [Unknown]
  - Fall [Unknown]
  - Chest injury [Unknown]
  - Haematochezia [Unknown]
  - Pain [Unknown]
  - Pulmonary embolism [Unknown]
  - Blood urine present [Unknown]
  - Injury [Unknown]
  - Pollakiuria [Unknown]
  - Faeces soft [Unknown]
  - Weight decreased [Unknown]
  - Hot flush [Unknown]
  - Incorrect dose administered [Unknown]

NARRATIVE: CASE EVENT DATE: 20241201
